FAERS Safety Report 14544217 (Version 1)
Quarter: 2018Q1

REPORT INFORMATION
  Report Type: Spontaneous
  Country: US (occurrence: US)
  Receive Date: 20180215
  Receipt Date: 20180215
  Transmission Date: 20180509
  Serious: No
  Sender: FDA-Public Use
  Company Number: None

PATIENT
  Sex: Female

DRUGS (3)
  1. ZARXIO [Suspect]
     Active Substance: FILGRASTIM-SNDZ
     Indication: PANCREATIC CARCINOMA
     Dosage: 480MCG DAILY FOR 7 DAYS, THEN 7 DAYS OFF SQ
     Route: 058
     Dates: start: 20171121
  2. ZARXIO [Suspect]
     Active Substance: FILGRASTIM-SNDZ
     Indication: PRODUCT USED FOR UNKNOWN INDICATION
     Dosage: 480MCG DAILY FOR 7 DAYS, THEN 7 DAYS OFF SQ
     Route: 058
     Dates: start: 20171121
  3. ZARXIO [Suspect]
     Active Substance: FILGRASTIM-SNDZ
     Indication: AGRANULOCYTOSIS
     Dosage: 480MCG DAILY FOR 7 DAYS, THEN 7 DAYS OFF SQ
     Route: 058
     Dates: start: 20171121

REACTIONS (1)
  - Confusional state [None]
